FAERS Safety Report 11783367 (Version 1)
Quarter: 2015Q4

REPORT INFORMATION
  Report Type: Spontaneous
  Country: FR (occurrence: FR)
  Receive Date: 20151127
  Receipt Date: 20151127
  Transmission Date: 20160305
  Serious: Yes (Other)
  Sender: FDA-Public Use
  Company Number: PHHY2015FR155440

PATIENT
  Age: 64 Year
  Sex: Female

DRUGS (1)
  1. ACLASTA [Suspect]
     Active Substance: ZOLEDRONIC ACID
     Indication: OSTEOPOROSIS
     Dosage: UNK, ONCE/SINGLE
     Route: 042
     Dates: start: 20151030

REACTIONS (4)
  - Sense of oppression [Recovered/Resolved]
  - Dyspnoea [Recovered/Resolved]
  - Chest pain [Recovered/Resolved]
  - Hypotension [Recovered/Resolved]

NARRATIVE: CASE EVENT DATE: 20151030
